FAERS Safety Report 4806629-0 (Version None)
Quarter: 2005Q4

REPORT INFORMATION
  Report Type: 
  Country: None (occurrence: None)
  Receive Date: 20051019
  Receipt Date: 20050930
  Transmission Date: 20060501
  Serious: Yes (Hospitalization)
  Sender: FDA-Public Use
  Company Number: USA0508104752

PATIENT
  Age: 51 Year
  Sex: Female
  Weight: 109 kg

DRUGS (7)
  1. HUMATROPE [Suspect]
     Indication: GROWTH HORMONE DEFICIENCY
     Dosage: 0.6 MG
     Dates: start: 20040819, end: 20050805
  2. LEXAPRO [Concomitant]
  3. ESTRADIOL [Concomitant]
  4. LISINOPRIL [Concomitant]
  5. WELLBUTRIN [Concomitant]
  6. NEURONTIN [Concomitant]
  7. AVANDAMET [Concomitant]

REACTIONS (4)
  - ACUTE PROMYELOCYTIC LEUKAEMIA [None]
  - FATIGUE [None]
  - INFECTION [None]
  - TOOTH INFECTION [None]
